FAERS Safety Report 11531356 (Version 2)
Quarter: 2015Q3

REPORT INFORMATION
  Report Type: Report from Study
  Country: US (occurrence: US)
  Receive Date: 20150921
  Receipt Date: 20150930
  Transmission Date: 20151125
  Serious: No
  Sender: FDA-Public Use
  Company Number: US-AMGEN-USASP2015095452

PATIENT
  Sex: Female

DRUGS (1)
  1. ENBREL [Suspect]
     Active Substance: ETANERCEPT
     Indication: PRODUCT USED FOR UNKNOWN INDICATION
     Dosage: UNK
     Route: 065

REACTIONS (8)
  - Feeling hot [Unknown]
  - Intervertebral disc degeneration [Unknown]
  - Reaction to preservatives [Unknown]
  - Urticaria [Unknown]
  - Swelling [Unknown]
  - Back disorder [Unknown]
  - Erythema [Unknown]
  - Pruritus [Unknown]
